FAERS Safety Report 24878798 (Version 1)
Quarter: 2025Q1

REPORT INFORMATION
  Report Type: Spontaneous
  Country: US (occurrence: US)
  Receive Date: 20250123
  Receipt Date: 20250123
  Transmission Date: 20250409
  Serious: No
  Sender: Haleon PLC
  Company Number: US-HALEON-2224267

PATIENT
  Age: 80 Year
  Sex: Male

DRUGS (1)
  1. FLONASE [Suspect]
     Active Substance: FLUTICASONE PROPIONATE
     Indication: Hypersensitivity

REACTIONS (2)
  - Hypogeusia [Unknown]
  - Hyposmia [Not Recovered/Not Resolved]

NARRATIVE: CASE EVENT DATE: 20241201
